FAERS Safety Report 5215269-3 (Version None)
Quarter: 2006Q4

REPORT INFORMATION
  Report Type: 
  Country: None (occurrence: None)
  Receive Date: 20061122
  Receipt Date: 20060505
  Transmission Date: 20070319
  Serious: Yes (Other)
  Sender: FDA-Public Use
  Company Number: HQWYE254510MAY06

PATIENT
  Age: 54 Year
  Sex: Female
  Weight: 63.56 kg

DRUGS (1)
  1. PREMARIN [Suspect]
     Indication: VULVOVAGINAL DRYNESS
     Dosage: 1.5 GRAMS TWICE PER WEEK, VAGINAL
     Route: 067
     Dates: start: 19960101

REACTIONS (2)
  - URETHRITIS [None]
  - URINARY TRACT INFECTION [None]
